FAERS Safety Report 6288883-4 (Version None)
Quarter: 2009Q3

REPORT INFORMATION
  Report Type: 
  Country: None (occurrence: None)
  Receive Date: 20090729
  Receipt Date: 20090722
  Transmission Date: 20100115
  Serious: Yes (Other)
  Sender: FDA-Public Use
  Company Number: DE-ABBOTT-09P-062-0587426-00

PATIENT
  Age: 23 Year
  Sex: Female
  Weight: 60 kg

DRUGS (7)
  1. KLACID [Suspect]
     Indication: DEPRESSION
     Route: 048
     Dates: start: 20090615, end: 20090621
  2. PANTOZOL 40 MG [Suspect]
     Indication: HELICOBACTER INFECTION
     Route: 048
     Dates: start: 20090604
  3. AMOXICILLIN [Suspect]
     Indication: DEPRESSION
     Route: 048
     Dates: start: 20090615, end: 20090621
  4. ATOSIL [Suspect]
     Indication: DEPRESSION
     Route: 048
     Dates: start: 20090604, end: 20090609
  5. MIRTAZAPINE [Suspect]
     Indication: DEPRESSION
     Route: 048
     Dates: start: 20090608, end: 20090609
  6. AGOMELATINE (VALDOXAN) [Suspect]
     Indication: DEPRESSION
     Route: 048
     Dates: start: 20090605, end: 20090626
  7. ZYPREXA [Suspect]
     Indication: DEPRESSION
     Route: 048
     Dates: start: 20090610, end: 20090614

REACTIONS (3)
  - BLOOD PROLACTIN INCREASED [None]
  - BREAST DISCOMFORT [None]
  - BREAST ENLARGEMENT [None]
